FAERS Safety Report 9253103 (Version 3)
Quarter: 2013Q2

REPORT INFORMATION
  Report Type: Spontaneous
  Country: US (occurrence: US)
  Receive Date: 20130424
  Receipt Date: 20130617
  Transmission Date: 20140414
  Serious: No
  Sender: FDA-Public Use
  Company Number: US-PFIZER INC-2013124999

PATIENT
  Age: 78 Year
  Sex: Female
  Weight: 60.77 kg

DRUGS (2)
  1. ADVIL [Suspect]
     Indication: HEADACHE
     Dosage: 1 DF, EVERY 4 HRS
     Dates: start: 201304, end: 20130418
  2. ADVAIR DISKUS [Suspect]
     Dosage: UNK
     Dates: end: 20130418

REACTIONS (8)
  - Expired drug administered [Unknown]
  - Hypersensitivity [Unknown]
  - Headache [Unknown]
  - Urticaria [Unknown]
  - Pruritus [Unknown]
  - Skin lesion [Unknown]
  - Skin haemorrhage [Unknown]
  - Rash [Recovered/Resolved]
